FAERS Safety Report 5922965-9 (Version None)
Quarter: 2008Q4

REPORT INFORMATION
  Report Type: 
  Country: None (occurrence: None)
  Receive Date: 20081018
  Receipt Date: 20081007
  Transmission Date: 20090506
  Serious: Yes (Hospitalization)
  Sender: FDA-Public Use
  Company Number: FR-PFIZER INC-2006054764

PATIENT
  Sex: Male

DRUGS (6)
  1. SU-011,248 [Suspect]
     Indication: RENAL CANCER
     Route: 048
     Dates: start: 20060403, end: 20060419
  2. MYOLASTAN [Concomitant]
     Dosage: TEXT:UNKNOWN-FREQ:UNKNOWN
     Route: 048
     Dates: start: 20060409, end: 20060409
  3. DAFALGAN [Concomitant]
     Dosage: TEXT:UNKNOWN-FREQ:UNKNOWN
     Route: 048
     Dates: start: 20060409, end: 20060409
  4. LOXEN [Concomitant]
     Dosage: TEXT:UNKNOWN-FREQ:UNKNOWN
     Route: 048
     Dates: end: 20060419
  5. KENZEN [Concomitant]
     Dosage: TEXT:UNKNOWN-FREQ:UNKNOWN
     Route: 048
     Dates: start: 20060419, end: 20060426
  6. EUPRESSYL [Concomitant]
     Dosage: TEXT:UNKNOWN-FREQ:UNKNOWN
     Route: 048
     Dates: start: 20060411, end: 20060426

REACTIONS (3)
  - ACUTE CORONARY SYNDROME [None]
  - CHEST PAIN [None]
  - HYPERTENSION [None]
